FAERS Safety Report 6703403-5 (Version None)
Quarter: 2010Q2

REPORT INFORMATION
  Report Type: 
  Country: None (occurrence: None)
  Receive Date: 20100430
  Receipt Date: 20100427
  Transmission Date: 20101027
  Serious: Yes (Hospitalization)
  Sender: FDA-Public Use
  Company Number: CH-EISAI INC.-E2020-06509-SPO-CH

PATIENT
  Sex: Female

DRUGS (6)
  1. ARICEPT [Suspect]
     Route: 048
     Dates: start: 20100305, end: 20100307
  2. ARICEPT [Suspect]
     Route: 048
     Dates: start: 20100308, end: 20100311
  3. ARICEPT [Suspect]
     Route: 048
     Dates: start: 20100312, end: 20100315
  4. DIPIPERON [Suspect]
     Indication: AGITATION
     Dosage: 180 MG
     Route: 048
     Dates: start: 20100208, end: 20100314
  5. DIPIPERON [Suspect]
     Dosage: 80 MG
     Route: 048
     Dates: start: 20100315
  6. REMERON [Concomitant]
     Indication: AGITATION
     Dosage: 15 MG
     Route: 048
     Dates: start: 20100203

REACTIONS (1)
  - DYSKINESIA [None]
